FAERS Safety Report 6591095-8 (Version None)
Quarter: 2010Q1

REPORT INFORMATION
  Report Type: 
  Country: None (occurrence: None)
  Receive Date: 20100205
  Receipt Date: 20100120
  Transmission Date: 20100710
  Serious: Yes (Death, Other)
  Sender: FDA-Public Use
  Company Number: 1-21365225

PATIENT
  Age: 61 Year
  Sex: Male

DRUGS (5)
  1. WARFARIN SODIUM [Suspect]
  2. AMIODARONE HCL [Concomitant]
  3. AMLODIPINE [Concomitant]
  4. CITALOPRAM HYDROBROMIDE [Concomitant]
  5. FOLIC ACID [Concomitant]

REACTIONS (6)
  - DIALYSIS [None]
  - HAEMOGLOBIN DECREASED [None]
  - OVERDOSE [None]
  - RENAL FAILURE ACUTE [None]
  - RENAL HAEMORRHAGE [None]
  - RENAL TUBULAR DISORDER [None]
